FAERS Safety Report 17704959 (Version 1)
Quarter: 2020Q2

REPORT INFORMATION
  Report Type: Spontaneous
  Country: CA (occurrence: CA)
  Receive Date: 20200424
  Receipt Date: 20200424
  Transmission Date: 20200714
  Serious: Yes (Life-Threatening, Hospitalization)
  Sender: FDA-Public Use
  Company Number: CA-ASTRAZENECA-2020SE55016

PATIENT
  Age: 82 Year
  Sex: Male

DRUGS (10)
  1. SYMBICORT [Concomitant]
     Active Substance: BUDESONIDE\FORMOTEROL FUMARATE DIHYDRATE
  2. ASA [Concomitant]
     Active Substance: ASPIRIN
  3. FORXIGA [Suspect]
     Active Substance: DAPAGLIFLOZIN
     Indication: DIABETES MELLITUS
     Route: 048
  4. SALBUTAMOL [Concomitant]
     Active Substance: ALBUTEROL
  5. IPRATROPIUM [Concomitant]
     Active Substance: IPRATROPIUM
  6. IRBESARTAN. [Concomitant]
     Active Substance: IRBESARTAN
  7. METFORMIN [Concomitant]
     Active Substance: METFORMIN HYDROCHLORIDE
  8. ROSUVASTATIN. [Concomitant]
     Active Substance: ROSUVASTATIN
  9. GLICLAZIDE [Concomitant]
     Active Substance: GLICLAZIDE
  10. VERAPAMIL HCL [Concomitant]
     Active Substance: VERAPAMIL HYDROCHLORIDE

REACTIONS (4)
  - Back pain [Recovered/Resolved]
  - Spinal compression fracture [Recovered/Resolved]
  - Malaise [Recovered/Resolved]
  - Metabolic acidosis [Recovered/Resolved]
